FAERS Safety Report 6440841-2 (Version None)
Quarter: 2009Q4

REPORT INFORMATION
  Report Type: 
  Country: None (occurrence: None)
  Receive Date: 20091116
  Receipt Date: 20091105
  Transmission Date: 20100525
  Serious: Yes (Hospitalization)
  Sender: FDA-Public Use
  Company Number: FR-JNJFOC-20091007764

PATIENT
  Age: 39 Year
  Sex: Female

DRUGS (4)
  1. REMICADE [Suspect]
     Route: 042
     Dates: start: 20040501, end: 20091028
  2. REMICADE [Suspect]
     Route: 042
     Dates: start: 20040501, end: 20091028
  3. REMICADE [Suspect]
     Route: 042
     Dates: start: 20040501, end: 20091028
  4. REMICADE [Suspect]
     Indication: CROHN'S DISEASE
     Route: 042
     Dates: start: 20040501, end: 20091028

REACTIONS (1)
  - HERPES ZOSTER [None]
